FAERS Safety Report 14118716 (Version 1)
Quarter: 2017Q4

REPORT INFORMATION
  Report Type: Spontaneous
  Country: CA (occurrence: CA)
  Receive Date: 20171024
  Receipt Date: 20171024
  Transmission Date: 20180321
  Serious: Yes (Other)
  Sender: FDA-Public Use
  Company Number: CA-AMGEN-CANSP2017158497

PATIENT
  Sex: Female
  Weight: 63.1 kg

DRUGS (8)
  1. ORENCIA [Concomitant]
     Active Substance: ABATACEPT
     Indication: RHEUMATOID ARTHRITIS
  2. HYDROXYCHLOROQUINE [Concomitant]
     Active Substance: HYDROXYCHLOROQUINE
     Indication: PUSTULAR PSORIASIS
     Dosage: 200 MG, QD
     Route: 065
  3. ENBREL [Suspect]
     Active Substance: ETANERCEPT
     Indication: RHEUMATOID ARTHRITIS
  4. ORENCIA [Concomitant]
     Active Substance: ABATACEPT
     Indication: PUSTULAR PSORIASIS
     Dosage: 750 MG, QMO
     Route: 042
     Dates: start: 2017, end: 2017
  5. METHOTREXATE. [Concomitant]
     Active Substance: METHOTREXATE
     Indication: RHEUMATOID ARTHRITIS
  6. HYDROXYCHLOROQUINE [Concomitant]
     Active Substance: HYDROXYCHLOROQUINE
     Indication: RHEUMATOID ARTHRITIS
     Dosage: 400 MG, QD
     Route: 065
     Dates: start: 2016, end: 2017
  7. ENBREL [Suspect]
     Active Substance: ETANERCEPT
     Indication: PUSTULAR PSORIASIS
     Dosage: 50 MG, QWK
     Route: 058
     Dates: start: 2017
  8. METHOTREXATE. [Concomitant]
     Active Substance: METHOTREXATE
     Indication: PUSTULAR PSORIASIS
     Dosage: 20 MG, QWK
     Route: 058

REACTIONS (2)
  - Drug ineffective [Unknown]
  - Polyarthritis [Unknown]

NARRATIVE: CASE EVENT DATE: 2017
